FAERS Safety Report 6905286-7 (Version None)
Quarter: 2010Q3

REPORT INFORMATION
  Report Type: 
  Country: None (occurrence: None)
  Receive Date: 20100802
  Receipt Date: 20100719
  Transmission Date: 20110219
  Serious: Yes (Hospitalization)
  Sender: FDA-Public Use
  Company Number: AUR-APL-2010-01833

PATIENT
  Age: 46 Year
  Sex: Female

DRUGS (6)
  1. SERTRALINE HYDROCHLORIDE [Suspect]
     Indication: DEPRESSION
     Dosage: 40MG, DAILY
  2. FENTANYL [Suspect]
     Dosage: 50UG, 1 DOSE(10:20), IV
     Route: 042
  3. CETIRIZINE HCL [Suspect]
     Indication: SEASONAL ALLERGY
     Dosage: 10MG - PRN
  4. MIDAZOLAM HCL [Suspect]
     Dosage: 2MG - 1 DOSE(10:20AM)
  5. PROPOFOL [Suspect]
     Dosage: 60MG - 1 DOSE(10:20AM)
  6. PROPOFOL [Suspect]
     Dosage: 40MG - 1 DOSE(10:34AM)

REACTIONS (7)
  - AGGRESSION [None]
  - ASPARTATE AMINOTRANSFERASE INCREASED [None]
  - DRUG INTERACTION [None]
  - OXYGEN SATURATION DECREASED [None]
  - RESPIRATORY RATE INCREASED [None]
  - SEROTONIN SYNDROME [None]
  - SOMNOLENCE [None]
